FAERS Safety Report 4955173-9 (Version None)
Quarter: 2006Q1

REPORT INFORMATION
  Report Type: 
  Country: None (occurrence: None)
  Receive Date: 20060328
  Receipt Date: 20051019
  Transmission Date: 20060701
  Serious: Yes (Hospitalization)
  Sender: FDA-Public Use
  Company Number: US-MERCK-0510USA08327

PATIENT
  Age: 66 Year
  Sex: Female
  Weight: 45 kg

DRUGS (5)
  1. VIOXX [Suspect]
     Indication: SPINAL OSTEOARTHRITIS
     Route: 048
     Dates: start: 20010329, end: 20020505
  2. VIOXX [Suspect]
     Route: 048
     Dates: start: 20010329, end: 20020505
  3. VIOXX [Suspect]
     Indication: SPINAL COLUMN STENOSIS
     Route: 048
     Dates: start: 20010329, end: 20020505
  4. VIOXX [Suspect]
     Route: 048
     Dates: start: 20010329, end: 20020505
  5. HYDROCODONE BITARTRATE [Concomitant]
     Route: 065

REACTIONS (12)
  - ADVERSE EVENT [None]
  - ANAESTHESIA [None]
  - ANXIETY [None]
  - CEREBROVASCULAR ACCIDENT [None]
  - CHEST PAIN [None]
  - COUGH [None]
  - GASTRITIS [None]
  - OVERDOSE [None]
  - PAIN [None]
  - RECTAL HAEMORRHAGE [None]
  - SPINAL DISORDER [None]
  - UPPER LIMB FRACTURE [None]
